FAERS Safety Report 5073015-0 (Version None)
Quarter: 2006Q3

REPORT INFORMATION
  Report Type: 
  Country: None (occurrence: None)
  Receive Date: 20060802
  Receipt Date: 20060720
  Transmission Date: 20061208
  Serious: Yes (Hospitalization)
  Sender: FDA-Public Use
  Company Number: 2006090621

PATIENT
  Age: 39 Year
  Sex: Male

DRUGS (1)
  1. MEDRATE 2/16/32/100 (METHYLPREDNISOLONE SODIUM SUCCINATE) [Suspect]
     Indication: MULTIPLE SCLEROSIS
     Dosage: 1000 MG (1000 MG, 1) INTRAVENOUS
     Route: 042
     Dates: start: 20060706

REACTIONS (5)
  - DIZZINESS [None]
  - HEADACHE [None]
  - MUSCULAR WEAKNESS [None]
  - MYALGIA [None]
  - NECK PAIN [None]
